FAERS Safety Report 8033357-3 (Version None)
Quarter: 2012Q1

REPORT INFORMATION
  Report Type: 
  Country: None (occurrence: None)
  Receive Date: 20120110
  Receipt Date: 20111229
  Transmission Date: 20120608
  Serious: Yes (Life-Threatening, Hospitalization, Other)
  Sender: FDA-Public Use
  Company Number: GB-PFIZER INC-2011312036

PATIENT
  Age: 54 Year
  Sex: Male

DRUGS (12)
  1. METFORMIN HCL [Suspect]
     Indication: DIABETES MELLITUS MANAGEMENT
     Dosage: UNK
     Route: 048
     Dates: start: 20110101
  2. BISOPROLOL [Concomitant]
     Indication: ACUTE CORONARY SYNDROME
  3. GLYCERYL TRINITRATE [Concomitant]
     Indication: ANGINA PECTORIS
     Dosage: UNK
     Route: 060
  4. BLINDED THERAPY [Concomitant]
     Indication: CORONARY ARTERY DISEASE
  5. RAMIPRIL [Suspect]
     Indication: ACUTE CORONARY SYNDROME
  6. ATORVASTATIN [Concomitant]
     Indication: HYPERCHOLESTEROLAEMIA
     Dosage: UNK
  7. INVESTIGATIONAL DRUG [Suspect]
     Indication: CORONARY ARTERY DISEASE
     Dosage: UNK
     Route: 048
     Dates: start: 20111117, end: 20111209
  8. BISOPROLOL [Concomitant]
     Indication: HYPERTENSION
     Dosage: UNK
  9. FUROSEMIDE [Concomitant]
     Indication: HYPERTENSION
     Dosage: UNK
     Dates: end: 20111209
  10. RAMIPRIL [Suspect]
     Indication: HYPERTENSION
     Dosage: UNK
     Route: 048
     Dates: start: 20110101
  11. ACETYLSALICYLIC ACID [Concomitant]
     Indication: ANGINA PECTORIS
     Dosage: 75 MG, 1X/DAY
     Route: 048
  12. FUROSEMIDE [Concomitant]
     Indication: ACUTE CORONARY SYNDROME

REACTIONS (4)
  - RENAL FAILURE ACUTE [None]
  - SEPSIS [None]
  - LACTIC ACIDOSIS [None]
  - TOXICITY TO VARIOUS AGENTS [None]
